FAERS Safety Report 14073607 (Version 1)
Quarter: 2017Q4

REPORT INFORMATION
  Report Type: Spontaneous
  Country: None (occurrence: DE)
  Receive Date: 20171011
  Receipt Date: 20171011
  Transmission Date: 20180321
  Serious: No
  Sender: FDA-Public Use
  Company Number: DE-D.O.R.C. INTERNATIONAL, B.V.-2029581

PATIENT

DRUGS (1)
  1. VISIONBLUE [Suspect]
     Active Substance: TRYPAN BLUE
     Indication: DIAGNOSTIC PROCEDURE
     Route: 031

REACTIONS (1)
  - Liquid product physical issue [None]

NARRATIVE: CASE EVENT DATE: 20140220
